FAERS Safety Report 13600323 (Version 1)
Quarter: 2017Q2

REPORT INFORMATION
  Report Type: Spontaneous
  Country: US (occurrence: US)
  Receive Date: 20170531
  Receipt Date: 20170531
  Transmission Date: 20170830
  Serious: No
  Sender: FDA-Public Use
  Company Number: None

PATIENT
  Age: 60 Year
  Sex: Female
  Weight: 72.9 kg

DRUGS (2)
  1. MELOXICAM 15 MG [Suspect]
     Active Substance: MELOXICAM
     Indication: NEURECTOMY
     Dosage: ?          QUANTITY:1 TABLET(S);?
     Route: 048
     Dates: start: 20170512, end: 20170512
  2. ONE A DAY MULTI VITAMIN [Concomitant]

REACTIONS (3)
  - Feeling hot [None]
  - Erythema [None]
  - Documented hypersensitivity to administered product [None]

NARRATIVE: CASE EVENT DATE: 20170512
